FAERS Safety Report 9166154 (Version 1)
Quarter: 2013Q1

REPORT INFORMATION
  Report Type: Spontaneous
  Country: GB (occurrence: None)
  Receive Date: 20130301
  Receipt Date: 20130301
  Transmission Date: 20140127
  Serious: Yes (Other)
  Sender: FDA-Public Use
  Company Number: AUR-APL-2013-01651

PATIENT
  Age: 43 Year
  Sex: Female

DRUGS (3)
  1. RIBAVIRIN (RIBAVIRIN) [Suspect]
     Indication: HEPATITIS C
     Route: 048
     Dates: start: 20121002
  2. PEGINTERFERON ALFA-2B (PEGINTERFERON ALFA-2B) [Suspect]
     Indication: HEPATITIS C
     Dosage: (1 IN 1 D), SUBCUTANEOUS
     Route: 058
     Dates: start: 20121002
  3. INCIVO (TELAPREVIR) [Suspect]
     Indication: HEPATITIS C
     Route: 048
     Dates: start: 20121002

REACTIONS (12)
  - Anaemia [None]
  - Pruritus [None]
  - Glossodynia [None]
  - Fatigue [None]
  - Dry mouth [None]
  - Dyspnoea [None]
  - Dry eye [None]
  - Nausea [None]
  - Dysgeusia [None]
  - Dyspnoea [None]
  - Rash [None]
  - Dizziness [None]
